FAERS Safety Report 4899208-0 (Version None)
Quarter: 2006Q1

REPORT INFORMATION
  Report Type: 
  Country: None (occurrence: None)
  Receive Date: 20060106
  Receipt Date: 20041228
  Transmission Date: 20060701
  Serious: Yes (Other)
  Sender: FDA-Public Use
  Company Number: HQWYE291630DEC04

PATIENT
  Age: 67 Year
  Sex: Male

DRUGS (2)
  1. PRIMATENE MIST [Suspect]
     Indication: ASTHMA
     Dosage: 1 INHALANT 3X PER 1 DAY, INHALATION
     Route: 055
  2. LOPRESSOR [Concomitant]

REACTIONS (2)
  - GLOSSODYNIA [None]
  - THROAT IRRITATION [None]
